FAERS Safety Report 15820059 (Version 1)
Quarter: 2019Q1

REPORT INFORMATION
  Report Type: Spontaneous
  Country: US (occurrence: US)
  Receive Date: 20190114
  Receipt Date: 20190114
  Transmission Date: 20190417
  Serious: No
  Sender: FDA-Public Use
  Company Number: US-JNJFOC-20181235617

PATIENT
  Age: 26 Year
  Sex: Female
  Weight: 70.31 kg

DRUGS (3)
  1. SIMPONI [Suspect]
     Active Substance: GOLIMUMAB
     Indication: CROHN^S DISEASE
     Route: 058
     Dates: start: 2018
  2. FOLIC ACID. [Concomitant]
     Active Substance: FOLIC ACID
     Route: 065
  3. METHOTREXATE. [Concomitant]
     Active Substance: METHOTREXATE
     Route: 065

REACTIONS (5)
  - Diarrhoea [Not Recovered/Not Resolved]
  - Underdose [Unknown]
  - Accidental exposure to product [Unknown]
  - Product use in unapproved indication [Unknown]
  - Off label use [Unknown]

NARRATIVE: CASE EVENT DATE: 2018
